FAERS Safety Report 22621217 (Version 1)
Quarter: 2023Q2

REPORT INFORMATION
  Report Type: Spontaneous
  Country: US (occurrence: None)
  Receive Date: 20230616
  Receipt Date: 20230616
  Transmission Date: 20230722
  Serious: Yes (Hospitalization)
  Sender: FDA-Public Use
  Company Number: None

PATIENT
  Sex: Male
  Weight: 129.7 kg

DRUGS (1)
  1. CISPLATIN [Suspect]
     Active Substance: CISPLATIN

REACTIONS (4)
  - Constipation [None]
  - Pain [None]
  - Anaemia [None]
  - Transfusion [None]

NARRATIVE: CASE EVENT DATE: 20230614
